FAERS Safety Report 20740383 (Version 1)
Quarter: 2022Q2

REPORT INFORMATION
  Report Type: Spontaneous
  Country: US (occurrence: US)
  Receive Date: 20220422
  Receipt Date: 20220422
  Transmission Date: 20220721
  Serious: Yes (Hospitalization)
  Sender: FDA-Public Use
  Company Number: US-HARMONY BIOSCIENCES-2022HMY00721

PATIENT
  Age: 55 Year
  Sex: Female
  Weight: 61.224 kg

DRUGS (23)
  1. WAKIX [Suspect]
     Active Substance: PITOLISANT HYDROCHLORIDE
     Indication: Narcolepsy
     Dosage: 35.6 MG, 1X/DAY
  2. IBUPROFEN [Concomitant]
     Active Substance: IBUPROFEN
     Dosage: UNK, 6X/DAY (EVERY 4 HOURS)
  3. RESTASIS [Concomitant]
     Active Substance: CYCLOSPORINE
  4. SYSTANE (HYPROMELLOSE 2910 (4000 MPA.S)) [Concomitant]
     Active Substance: HYPROMELLOSE 2910 (4000 MPA.S)
  5. PEPCID [Concomitant]
     Active Substance: FAMOTIDINE
  6. VITAMIN D [Concomitant]
     Active Substance: VITAMIN D NOS
  7. ZOFRAN [Concomitant]
     Active Substance: ONDANSETRON HYDROCHLORIDE
  8. LEVOTHYROXINE [Concomitant]
     Active Substance: LEVOTHYROXINE
  9. MORPHINE [Concomitant]
     Active Substance: MORPHINE
     Dosage: 30 MG, 3X/DAY (EVERY 8 HOURS)
  10. FLONASE [Concomitant]
     Active Substance: FLUTICASONE PROPIONATE
  11. EMGALITY [Concomitant]
     Active Substance: GALCANEZUMAB-GNLM
  12. METHOCARBAMOL [Concomitant]
     Active Substance: METHOCARBAMOL
  13. PERCOCET [Concomitant]
     Active Substance: ACETAMINOPHEN\OXYCODONE HYDROCHLORIDE
  14. VALIUM [Concomitant]
     Active Substance: DIAZEPAM
     Dosage: ^3^, 1X/DAY EVERY NIGHT AT BEDTIME
  15. PRASTERONE DHEA AND CALCIUM [Concomitant]
  16. ESTRADIOL [Concomitant]
     Active Substance: ESTRADIOL
  17. TRIAMCINOLONE [Concomitant]
     Active Substance: TRIAMCINOLONE
  18. COLACE [Concomitant]
     Active Substance: DOCUSATE SODIUM
  19. DULCOLAX NOS [Concomitant]
     Active Substance: BISACODYL OR DOCUSATE SODIUM
  20. PROMETHAZINE [Concomitant]
     Active Substance: PROMETHAZINE HYDROCHLORIDE
  21. MOTEGRITY [Concomitant]
     Active Substance: PRUCALOPRIDE SUCCINATE
  22. EPIPEN [Concomitant]
     Active Substance: EPINEPHRINE
  23. BOTOX [Concomitant]
     Active Substance: ONABOTULINUMTOXINA

REACTIONS (2)
  - Spinal operation [Not Recovered/Not Resolved]
  - Post procedural complication [Not Recovered/Not Resolved]

NARRATIVE: CASE EVENT DATE: 20220401
